FAERS Safety Report 13920978 (Version 2)
Quarter: 2017Q3

REPORT INFORMATION
  Report Type: Spontaneous
  Country: US (occurrence: US)
  Receive Date: 20170830
  Receipt Date: 20170912
  Transmission Date: 20171127
  Serious: Yes (Hospitalization, Other)
  Sender: FDA-Public Use
  Company Number: US-PFIZER INC-2017054417

PATIENT
  Age: 65 Year
  Sex: Female
  Weight: 95.25 kg

DRUGS (5)
  1. IBRANCE [Suspect]
     Active Substance: PALBOCICLIB
     Indication: BREAST CANCER METASTATIC
     Dosage: 125 MG, CYCLIC (TAKE 1 CAPSULE WITH FOOD ON DAYS 1-21 OF A 28 DAY CYCLE/ONCE DAILY FOR 21 DAYS)
     Route: 048
     Dates: start: 2016
  2. CIMEDINE [Concomitant]
     Indication: GASTROOESOPHAGEAL REFLUX DISEASE
     Dosage: UNK
  3. METFORMIN [Concomitant]
     Active Substance: METFORMIN HYDROCHLORIDE
     Indication: GLUCOSE TOLERANCE IMPAIRED
     Dosage: 1500 MG, 1X/DAY
     Route: 048
  4. PRISTIQ EXTENDED-RELEASE [Concomitant]
     Active Substance: DESVENLAFAXINE SUCCINATE
     Indication: DEPRESSION
     Dosage: 100 MG, 1X/DAY
     Route: 048
  5. ALPRAZOLAM. [Concomitant]
     Active Substance: ALPRAZOLAM
     Indication: ANXIETY
     Dosage: 1 MG, AS NEEDED [UP TO 4 TIMES PER DAY]
     Route: 048
     Dates: start: 2007

REACTIONS (6)
  - Anaphylactic shock [Recovered/Resolved]
  - Oxygen saturation decreased [Unknown]
  - Arthropod sting [Recovered/Resolved]
  - Infection [Unknown]
  - Neutropenia [Unknown]
  - Blood lactic acid abnormal [Unknown]

NARRATIVE: CASE EVENT DATE: 20170820
